FAERS Safety Report 9036866 (Version 1)
Quarter: 2013Q1

REPORT INFORMATION
  Report Type: Spontaneous
  Country: US (occurrence: None)
  Receive Date: 20130118
  Receipt Date: 20130118
  Transmission Date: 20140127
  Serious: No
  Sender: FDA-Public Use
  Company Number: None

PATIENT
  Age: 21 Year
  Sex: Male
  Weight: 56.5 kg

DRUGS (1)
  1. NPLATE [Suspect]

REACTIONS (1)
  - Haemolytic anaemia [None]
